FAERS Safety Report 4960571-3 (Version None)
Quarter: 2006Q1

REPORT INFORMATION
  Report Type: 
  Country: None (occurrence: None)
  Receive Date: 20060331
  Receipt Date: 20060331
  Transmission Date: 20060701
  Serious: Yes (Life-Threatening, Hospitalization, Disabling)
  Sender: FDA-Public Use
  Company Number: None

PATIENT
  Sex: Male
  Weight: 87.9978 kg

DRUGS (1)
  1. ZYPREXA [Suspect]
     Indication: EMOTIONAL DISORDER

REACTIONS (2)
  - CONVULSION [None]
  - DISTURBANCE IN ATTENTION [None]
